FAERS Safety Report 17107414 (Version 4)
Quarter: 2020Q3

REPORT INFORMATION
  Report Type: Report from Study
  Country: ZA (occurrence: ZA)
  Receive Date: 20191203
  Receipt Date: 20200728
  Transmission Date: 20201102
  Serious: Yes (Death, Hospitalization)
  Sender: FDA-Public Use
  Company Number: PHHY2018ZA073693

PATIENT
  Age: 42 Year
  Sex: Female

DRUGS (3)
  1. TUVIGIN [Suspect]
     Active Substance: FINGOLIMOD HYDROCHLORIDE
     Indication: SECONDARY PROGRESSIVE MULTIPLE SCLEROSIS
     Dosage: 0.5 MG, QD
     Route: 048
     Dates: start: 20180731
  2. TUVIGIN [Suspect]
     Active Substance: FINGOLIMOD HYDROCHLORIDE
     Indication: RELAPSING-REMITTING MULTIPLE SCLEROSIS
     Dosage: 0.5 MG, QD
     Route: 065
     Dates: start: 20180801
  3. TUVIGIN [Suspect]
     Active Substance: FINGOLIMOD HYDROCHLORIDE
     Dosage: 0.5 MG, QD
     Route: 048
     Dates: start: 20180801

REACTIONS (13)
  - Headache [Not Recovered/Not Resolved]
  - Death [Fatal]
  - Gastrointestinal disorder [Unknown]
  - Diarrhoea [Unknown]
  - Product use in unapproved indication [Unknown]
  - Multiple sclerosis relapse [Unknown]
  - Gait disturbance [Unknown]
  - Fatigue [Not Recovered/Not Resolved]
  - Muscular weakness [Unknown]
  - Influenza [Unknown]
  - Abdominal discomfort [Unknown]
  - Hemiparesis [Unknown]
  - Immune system disorder [Unknown]

NARRATIVE: CASE EVENT DATE: 20180803
